FAERS Safety Report 9370673 (Version 1)
Quarter: 2013Q2

REPORT INFORMATION
  Report Type: Spontaneous
  Country: US (occurrence: US)
  Receive Date: 20130626
  Receipt Date: 20130626
  Transmission Date: 20140414
  Serious: No
  Sender: FDA-Public Use
  Company Number: US-B.I. PHARMACEUTICALS,INC./RIDGEFIELD-2013-BI-17286BP

PATIENT
  Age: 45 Year
  Sex: Female
  Weight: 67 kg

DRUGS (8)
  1. COMBIVENT [Suspect]
     Indication: CHRONIC OBSTRUCTIVE PULMONARY DISEASE
     Route: 055
     Dates: end: 20130527
  2. COMBIVENT [Suspect]
     Indication: CHRONIC OBSTRUCTIVE PULMONARY DISEASE
     Route: 055
     Dates: start: 20130528
  3. ALBUTEROL [Concomitant]
     Route: 055
  4. MOTRIN [Concomitant]
     Route: 048
  5. XANAX [Concomitant]
     Route: 048
  6. ADDERALL [Concomitant]
     Route: 048
  7. FLEXERIL [Concomitant]
     Indication: INTERVERTEBRAL DISC DEGENERATION
     Route: 048
  8. PAXIL [Concomitant]
     Route: 048

REACTIONS (2)
  - Suffocation feeling [Not Recovered/Not Resolved]
  - Drug ineffective [Not Recovered/Not Resolved]
